FAERS Safety Report 24819217 (Version 1)
Quarter: 2025Q1

REPORT INFORMATION
  Report Type: Spontaneous
  Country: US (occurrence: US)
  Receive Date: 20250108
  Receipt Date: 20250108
  Transmission Date: 20250409
  Serious: Yes (Other)
  Sender: PFIZER
  Company Number: US-PFIZER INC-PV202500001748

PATIENT
  Age: 89 Year
  Sex: Female
  Weight: 56.6 kg

DRUGS (2)
  1. IBRANCE [Suspect]
     Active Substance: PALBOCICLIB
     Indication: Breast cancer metastatic
     Route: 048
     Dates: start: 20210501
  2. ANASTROZOLE [Concomitant]
     Active Substance: ANASTROZOLE
     Dosage: 1 MG, DAILY
     Dates: start: 20210501

REACTIONS (4)
  - Myelosuppression [Unknown]
  - Dizziness postural [Unknown]
  - Pulmonary mass [Unknown]
  - Anaemia macrocytic [Unknown]
